FAERS Safety Report 5045761-6 (Version None)
Quarter: 2006Q2

REPORT INFORMATION
  Report Type: 
  Country: None (occurrence: None)
  Receive Date: 20060601
  Receipt Date: 20060404
  Transmission Date: 20061013
  Serious: No
  Sender: FDA-Public Use
  Company Number: 2006-BP-01092BP(1)

PATIENT
  Age: 77 Year
  Sex: Male

DRUGS (6)
  1. SPIRIVA [Suspect]
     Indication: CHRONIC OBSTRUCTIVE PULMONARY DISEASE
     Dosage: 18 MCG (18 MCG, QD), IH
     Route: 055
     Dates: start: 20050101
  2. THEOPHYLLINE [Concomitant]
  3. ADVAIR (SERETIDE /01420901/) [Concomitant]
  4. ALBUTEROL SPIROS [Concomitant]
  5. ZOCOR [Concomitant]
  6. ADVIL [Concomitant]

REACTIONS (1)
  - AGEUSIA [None]
